FAERS Safety Report 20575511 (Version 1)
Quarter: 2022Q1

REPORT INFORMATION
  Report Type: Spontaneous
  Country: US (occurrence: US)
  Receive Date: 20220310
  Receipt Date: 20220310
  Transmission Date: 20220423
  Serious: Yes (Other)
  Sender: FDA-Public Use
  Company Number: US-SUN PHARMACEUTICAL INDUSTRIES LTD-2022R1-329068

PATIENT
  Age: 48 Year
  Sex: Female

DRUGS (1)
  1. TRAMADOL [Suspect]
     Active Substance: TRAMADOL
     Indication: Pain in extremity
     Dosage: 50 MG
     Route: 065

REACTIONS (3)
  - Uraemic encephalopathy [Recovered/Resolved]
  - Muscle twitching [Recovered/Resolved]
  - Myoclonus [Recovered/Resolved]
